FAERS Safety Report 6210796-4 (Version None)
Quarter: 2009Q2

REPORT INFORMATION
  Report Type: 
  Country: None (occurrence: None)
  Receive Date: 20090601
  Receipt Date: 20090519
  Transmission Date: 20091009
  Serious: Yes (Death)
  Sender: FDA-Public Use
  Company Number: DE-PFIZER INC-2009217113

PATIENT
  Age: 67 Year

DRUGS (12)
  1. CISPLATIN [Suspect]
     Indication: NON-HODGKIN'S LYMPHOMA
     Dosage: CYCLICAL
  2. DOXORUBICIN HCL [Suspect]
     Indication: NON-HODGKIN'S LYMPHOMA
     Dosage: CYCLICAL
  3. ETOPOSIDE [Suspect]
     Indication: NON-HODGKIN'S LYMPHOMA
     Dosage: CYCLICAL
  4. METHOTREXATE [Suspect]
     Indication: NON-HODGKIN'S LYMPHOMA
     Dosage: CYCLICAL
  5. VINCRISTINE SULFATE [Suspect]
     Indication: NON-HODGKIN'S LYMPHOMA
     Dosage: CYCLICAL
  6. CYCLOPHOSPHAMIDE [Suspect]
     Indication: NON-HODGKIN'S LYMPHOMA
     Dosage: CYCLICAL
  7. CYTARABINE [Suspect]
     Indication: NON-HODGKIN'S LYMPHOMA
     Dosage: CYCLICAL
  8. PREDNISOLONE AND PREDNISOLONE STEAGLATE [Suspect]
     Indication: NON-HODGKIN'S LYMPHOMA
     Dosage: CYCLICAL
  9. CARMUSTINE [Suspect]
     Indication: NON-HODGKIN'S LYMPHOMA
     Dosage: CYCLICAL
  10. DEXAMETHASONE [Suspect]
     Indication: NON-HODGKIN'S LYMPHOMA
     Dosage: CYCLICAL
  11. MELPHALAN [Suspect]
     Indication: NON-HODGKIN'S LYMPHOMA
     Dosage: CYCLICAL
  12. RITUXIMAB [Suspect]
     Indication: NON-HODGKIN'S LYMPHOMA
     Dosage: CYCLICAL

REACTIONS (1)
  - CLOSTRIDIAL INFECTION [None]
